FAERS Safety Report 5392466-8 (Version None)
Quarter: 2007Q3

REPORT INFORMATION
  Report Type: 
  Country: None (occurrence: None)
  Receive Date: 20070720
  Receipt Date: 20070712
  Transmission Date: 20080115
  Serious: Yes (Other)
  Sender: FDA-Public Use
  Company Number: US-ABBOTT-07P-163-0374515-00

PATIENT
  Sex: Female

DRUGS (7)
  1. DILAUDID [Suspect]
     Indication: INTERVERTEBRAL DISC PROTRUSION
  2. PEGINTERFERON ALFA-2A [Suspect]
     Indication: HEPATITIS C VIRUS
     Dates: start: 20070417
  3. PEGINTERFERON ALFA-2A [Suspect]
  4. RIBAVIRIN [Suspect]
     Indication: HEPATITIS C VIRUS
     Dates: start: 20070417
  5. RIBAVIRIN [Suspect]
  6. CITALOPRAM HYDROBROMIDE [Suspect]
     Indication: DEPRESSION
  7. METHADONE HCL [Suspect]
     Indication: INTERVERTEBRAL DISC PROTRUSION

REACTIONS (7)
  - DRUG INEFFECTIVE [None]
  - FATIGUE [None]
  - HOMICIDAL IDEATION [None]
  - INJECTION SITE ERYTHEMA [None]
  - INJECTION SITE INDURATION [None]
  - INJECTION SITE PAIN [None]
  - SUICIDAL IDEATION [None]
